FAERS Safety Report 7239366-6 (Version None)
Quarter: 2011Q1

REPORT INFORMATION
  Report Type: 
  Country: None (occurrence: None)
  Receive Date: 20110121
  Receipt Date: 20110117
  Transmission Date: 20110831
  Serious: Yes (Other)
  Sender: FDA-Public Use
  Company Number: US-ABBOTT-11P-163-0699140-00

PATIENT
  Age: 63 Year
  Sex: Male

DRUGS (20)
  1. TYENOL # 3 [Concomitant]
     Indication: ARTHRALGIA
     Dosage: EVERY 4-6 HOURS AS REQUIRED
     Route: 048
  2. PLAVIX [Concomitant]
     Indication: CARDIAC DISORDER
     Route: 048
  3. TERAZOCIN [Concomitant]
     Indication: PROSTATIC DISORDER
     Route: 048
  4. FAMOTIDINE [Concomitant]
     Indication: HYPERCHLORHYDRIA
     Route: 048
  5. DILANTIN [Concomitant]
     Indication: NEUROPATHY PERIPHERAL
     Route: 048
  6. LOSARTAN [Concomitant]
     Indication: HYPERTENSION
     Route: 048
  7. LACTASE [Concomitant]
     Indication: LACTOSE INTOLERANCE
     Route: 048
  8. HUMIRA [Suspect]
     Indication: PSORIATIC ARTHROPATHY
     Route: 058
     Dates: start: 20101201
  9. SALSALATE [Concomitant]
     Indication: ARTHRITIS
     Route: 048
  10. METFORMIN [Concomitant]
     Indication: TYPE 2 DIABETES MELLITUS
     Route: 048
  11. CRESTOR [Concomitant]
     Indication: BLOOD CHOLESTEROL INCREASED
     Dosage: 40MG (1/2 TAB) 0.5 IN 1 DAY
     Route: 048
  12. TETRACYCLINE [Concomitant]
     Indication: GASTRIC DISORDER
     Dosage: ALTERNATES WITH UNKNOWN ANTIBIOTIC
     Route: 048
  13. UNKNOWN ANTIBIOTIC [Concomitant]
     Indication: GASTRIC DISORDER
     Dosage: ALTERNATES WITH TETRACYCLINE
     Route: 048
  14. OXYBUTYNIN [Concomitant]
     Indication: HYPERTENSION
     Route: 048
  15. TRAZODONE HCL [Concomitant]
     Indication: INSOMNIA
     Route: 048
  16. CREON [Concomitant]
     Indication: PANCREATIC ENZYMES
     Dosage: 6- 3 TIMES DAILY
     Route: 048
  17. FLUCONAZOLE [Concomitant]
     Indication: RHINITIS ALLERGIC
     Route: 045
  18. HUMIRA [Suspect]
     Route: 058
     Dates: start: 20080101, end: 20101201
  19. CITALOPRAM [Concomitant]
     Indication: POST-TRAUMATIC STRESS DISORDER
     Route: 048
  20. GABAPENTIN [Concomitant]
     Indication: ABDOMINAL PAIN
     Route: 048

REACTIONS (2)
  - PAIN [None]
  - GASTRIC DISORDER [None]
